FAERS Safety Report 10891238 (Version 3)
Quarter: 2015Q2

REPORT INFORMATION
  Report Type: Spontaneous
  Country: US (occurrence: US)
  Receive Date: 20150306
  Receipt Date: 20150417
  Transmission Date: 20150821
  Serious: Yes (Other)
  Sender: FDA-Public Use
  Company Number: US-AMGEN-USASP2015020275

PATIENT
  Age: 55 Year
  Sex: Female
  Weight: 90.7 kg

DRUGS (5)
  1. PEPCID [Concomitant]
     Active Substance: FAMOTIDINE
     Indication: GASTROOESOPHAGEAL REFLUX DISEASE
  2. ENBREL [Suspect]
     Active Substance: ETANERCEPT
     Indication: RHEUMATOID ARTHRITIS
     Dosage: 50 MG, QWK
     Route: 058
     Dates: start: 20110201
  3. PEPCID [Concomitant]
     Active Substance: FAMOTIDINE
     Indication: ABDOMINAL DISCOMFORT
     Dosage: UNK
  4. PRILOSEC [Concomitant]
     Active Substance: OMEPRAZOLE MAGNESIUM
     Indication: GASTROOESOPHAGEAL REFLUX DISEASE
     Dosage: UNK
  5. FLONASE                            /00908302/ [Concomitant]
     Dosage: UNK

REACTIONS (14)
  - Increased viscosity of nasal secretion [Recovered/Resolved]
  - Drug eruption [Recovering/Resolving]
  - Injection site discomfort [Unknown]
  - Pruritus [Recovered/Resolved]
  - Gastric disorder [Recovered/Resolved]
  - Dyspepsia [Not Recovered/Not Resolved]
  - Injection site haemorrhage [Unknown]
  - Rhinorrhoea [Recovered/Resolved]
  - Sinusitis [Unknown]
  - Skin disorder [Recovered/Resolved]
  - Rash [Recovered/Resolved]
  - Infection [Unknown]
  - Epistaxis [Recovered/Resolved]
  - Staphylococcal infection [Recovered/Resolved]

NARRATIVE: CASE EVENT DATE: 201502
